FAERS Safety Report 15205594 (Version 1)
Quarter: 2018Q3

REPORT INFORMATION
  Report Type: Spontaneous
  Country: US (occurrence: US)
  Receive Date: 20180726
  Receipt Date: 20180726
  Transmission Date: 20181010
  Serious: No
  Sender: FDA-Public Use
  Company Number: US-GLAXOSMITHKLINE-US2018GSK130153

PATIENT
  Sex: Female

DRUGS (7)
  1. SUMATRIPTAN (SUMATRIPTAN SUCCINATE) NASAL SPRAY [Suspect]
     Active Substance: SUMATRIPTAN SUCCINATE
     Indication: MIGRAINE
  2. CALCIUM+D3 [Concomitant]
  3. GILENYA [Concomitant]
     Active Substance: FINGOLIMOD HYDROCHLORIDE
     Indication: MULTIPLE SCLEROSIS
     Dosage: 0.5 MG, QD
     Route: 048
     Dates: start: 2017
  4. SUMATRIPTAN (SUMATRIPTAN SUCCINATE) TABLET [Suspect]
     Active Substance: SUMATRIPTAN
     Indication: MIGRAINE
  5. BACLOFEN. [Concomitant]
     Active Substance: BACLOFEN
     Indication: MUSCLE SPASTICITY
  6. EXCEDRIN MIGRAINE [Concomitant]
     Active Substance: ACETAMINOPHEN\ASPIRIN\CAFFEINE
  7. ALEVE [Concomitant]
     Active Substance: NAPROXEN SODIUM

REACTIONS (3)
  - Treatment noncompliance [Unknown]
  - Dizziness [Unknown]
  - Oropharyngeal discomfort [Unknown]
